FAERS Safety Report 10595707 (Version 1)
Quarter: 2014Q4

REPORT INFORMATION
  Report Type: Spontaneous
  Country: DE (occurrence: JP)
  Receive Date: 20141120
  Receipt Date: 20141120
  Transmission Date: 20150529
  Serious: Yes (Hospitalization)
  Sender: FDA-Public Use
  Company Number: JP-FRI-1000072426

PATIENT
  Age: 74 Year
  Sex: Female

DRUGS (6)
  1. MEMANTINE [Suspect]
     Active Substance: MEMANTINE
     Dosage: 20 MG
     Route: 048
  2. MEMANTINE [Suspect]
     Active Substance: MEMANTINE
     Dosage: 10 MG
     Route: 048
  3. MEMANTINE [Suspect]
     Active Substance: MEMANTINE
     Dosage: 15 MG
     Route: 048
  4. MEMANTINE [Suspect]
     Active Substance: MEMANTINE
     Indication: DEMENTIA ALZHEIMER^S TYPE
     Dosage: 5 MG
     Route: 048
  5. PLETAAL [Concomitant]
     Active Substance: CILOSTAZOL
  6. ONEALFA [Concomitant]
     Active Substance: ALFACALCIDOL

REACTIONS (3)
  - Loss of consciousness [Recovered/Resolved]
  - Blood sodium increased [Unknown]
  - Seizure [Unknown]

NARRATIVE: CASE EVENT DATE: 20141017
